FAERS Safety Report 6581922-2 (Version None)
Quarter: 2010Q1

REPORT INFORMATION
  Report Type: 
  Country: None (occurrence: None)
  Receive Date: 20100215
  Receipt Date: 20100208
  Transmission Date: 20100710
  Serious: No
  Sender: FDA-Public Use
  Company Number: US-B.I. PHARMACEUTICALS,INC./RIDGEFIELD-2010-BP-00172BP

PATIENT
  Sex: Female

DRUGS (12)
  1. SPIRIVA [Suspect]
     Indication: CHRONIC OBSTRUCTIVE PULMONARY DISEASE
     Dosage: 18 MCG
     Route: 055
     Dates: start: 20091101
  2. OXYCONTIN [Concomitant]
     Indication: NERVE INJURY
  3. POTASSIUM CHLORIDE [Concomitant]
     Indication: BLOOD POTASSIUM DECREASED
  4. SOMA [Concomitant]
     Indication: POST LAMINECTOMY SYNDROME
  5. ALBUTEROL [Concomitant]
     Indication: CHRONIC OBSTRUCTIVE PULMONARY DISEASE
     Route: 055
  6. ATENOLOL [Concomitant]
     Indication: HYPERTENSION
  7. LYRICA [Concomitant]
     Indication: NERVE INJURY
  8. PRILOSEC [Concomitant]
     Indication: GASTROOESOPHAGEAL REFLUX DISEASE
  9. CYMBALTA [Concomitant]
     Indication: DEPRESSION
  10. TEMAZEPAM [Concomitant]
     Indication: INSOMNIA
  11. FUROSEMIDE [Concomitant]
     Indication: HYPERTENSION
  12. XANAX [Concomitant]
     Indication: DEPRESSION

REACTIONS (1)
  - DYSPNOEA [None]
